FAERS Safety Report 5141109-7 (Version None)
Quarter: 2006Q4

REPORT INFORMATION
  Report Type: 
  Country: None (occurrence: None)
  Receive Date: 20061101
  Receipt Date: 20060502
  Transmission Date: 20070319
  Serious: Yes (Other)
  Sender: FDA-Public Use
  Company Number: PHNU2006DE01830

PATIENT
  Sex: Female

DRUGS (4)
  1. DIOVAN [Suspect]
     Indication: HYPERTENSION
     Dosage: 0.5 DF, BID
  2. CONCOR [Suspect]
     Indication: HYPERTENSION
  3. CARMEN [Suspect]
     Dosage: 0.25 DF, BID
  4. CYMBALTA [Concomitant]
     Dosage: 100 MG, QD

REACTIONS (5)
  - CONDITION AGGRAVATED [None]
  - DEPRESSION [None]
  - OCULAR VASCULAR DISORDER [None]
  - OOPHORECTOMY [None]
  - PSORIASIS [None]
